FAERS Safety Report 8215434-7 (Version None)
Quarter: 2012Q1

REPORT INFORMATION
  Report Type: 
  Country: None (occurrence: None)
  Receive Date: 20120316
  Receipt Date: 20120306
  Transmission Date: 20120608
  Serious: Yes (Other)
  Sender: FDA-Public Use
  Company Number: US-ELI_LILLY_AND_COMPANY-US201203002331

PATIENT
  Sex: Female

DRUGS (1)
  1. FORTEO [Suspect]
     Indication: OSTEOPOROSIS
     Dosage: 20 UG, QD
     Dates: start: 20120201

REACTIONS (11)
  - ASTHENIA [None]
  - NECK PAIN [None]
  - MUSCLE SPASMS [None]
  - BACK PAIN [None]
  - FATIGUE [None]
  - SOMNOLENCE [None]
  - MUSCULOSKELETAL PAIN [None]
  - LOSS OF CONSCIOUSNESS [None]
  - ROAD TRAFFIC ACCIDENT [None]
  - PAIN [None]
  - NAUSEA [None]
